FAERS Safety Report 20707480 (Version 3)
Quarter: 2022Q2

REPORT INFORMATION
  Report Type: Spontaneous
  Country: JP (occurrence: JP)
  Receive Date: 20220413
  Receipt Date: 20220624
  Transmission Date: 20220721
  Serious: Yes (Other)
  Sender: FDA-Public Use
  Company Number: JP-ANIPHARMA-2022-JP-000112

PATIENT
  Age: 89 Year
  Sex: Female

DRUGS (2)
  1. CANDESARTAN CILEXETIL [Suspect]
     Active Substance: CANDESARTAN CILEXETIL
     Indication: Product used for unknown indication
     Dosage: 8 MG DAILY/ 12 MG DAILY
     Route: 048
     Dates: start: 202202
  2. AMLODIPINE BESYLATE [Concomitant]
     Active Substance: AMLODIPINE BESYLATE
     Dosage: 10 MG DAILY
     Route: 048

REACTIONS (12)
  - Anaemia [Unknown]
  - Dizziness postural [Unknown]
  - Palpitations [Unknown]
  - Blood pressure inadequately controlled [Unknown]
  - Tinnitus [Unknown]
  - Arrhythmia [Unknown]
  - Drug ineffective [Unknown]
  - Head discomfort [Unknown]
  - Heart rate increased [Unknown]
  - Headache [Unknown]
  - Head discomfort [Unknown]
  - Dizziness [Unknown]

NARRATIVE: CASE EVENT DATE: 20220101
